FAERS Safety Report 17360472 (Version 1)
Quarter: 2020Q1

REPORT INFORMATION
  Report Type: Spontaneous
  Country: US (occurrence: US)
  Receive Date: 20200203
  Receipt Date: 20200203
  Transmission Date: 20200409
  Serious: No
  Sender: FDA-Public Use
  Company Number: US-MYLANLABS-2020M1006650

PATIENT
  Sex: Female

DRUGS (1)
  1. MESALAMINE EXTENDED-RELEASE CAPSULES USP [Suspect]
     Active Substance: MESALAMINE
     Indication: PROCTITIS ULCERATIVE
     Dosage: UNK UNK, QD
     Route: 048

REACTIONS (2)
  - Off label use [Unknown]
  - Product label issue [Unknown]
